FAERS Safety Report 5191291-0 (Version None)
Quarter: 2006Q4

REPORT INFORMATION
  Report Type: 
  Country: None (occurrence: None)
  Receive Date: 20061218
  Receipt Date: 20061204
  Transmission Date: 20070319
  Serious: Yes (Other)
  Sender: FDA-Public Use
  Company Number: 150698ISR

PATIENT
  Age: 60 Year
  Sex: Female

DRUGS (1)
  1. TAMOXIFEN CITRATE [Suspect]
     Indication: BREAST CANCER
     Dosage: 20 MG (20 MG, 1 IN 1 D)
     Dates: start: 20031027, end: 20051120

REACTIONS (2)
  - CONDITION AGGRAVATED [None]
  - OSTEOARTHRITIS [None]
